FAERS Safety Report 5483558-3 (Version None)
Quarter: 2007Q4

REPORT INFORMATION
  Report Type: 
  Country: None (occurrence: None)
  Receive Date: 20071010
  Receipt Date: 20071010
  Transmission Date: 20080405
  Serious: Yes (Life-Threatening, Disabling)
  Sender: FDA-Public Use
  Company Number: None

PATIENT
  Age: 16 Year
  Sex: Male
  Weight: 79.3795 kg

DRUGS (2)
  1. PAXIL CR [Suspect]
     Indication: ANXIETY
     Dosage: 1 DAILY PO
     Route: 048
     Dates: start: 20070207, end: 20070515
  2. PAXIL CR [Suspect]
     Indication: SLEEP DISORDER
     Dosage: 1 DAILY PO
     Route: 048
     Dates: start: 20070207, end: 20070515

REACTIONS (3)
  - MEMORY IMPAIRMENT [None]
  - PYROMANIA [None]
  - SUICIDE ATTEMPT [None]
